FAERS Safety Report 17567803 (Version 2)
Quarter: 2020Q1

REPORT INFORMATION
  Report Type: Spontaneous
  Country: CH (occurrence: CH)
  Receive Date: 20200320
  Receipt Date: 20200326
  Transmission Date: 20200409
  Serious: Yes (Life-Threatening, Hospitalization)
  Sender: FDA-Public Use
  Company Number: CH-ASTRAZENECA-2020SE39662

PATIENT
  Sex: Male

DRUGS (8)
  1. APROVEL [Concomitant]
     Active Substance: IRBESARTAN
  2. CARBOPLATIN. [Concomitant]
     Active Substance: CARBOPLATIN
     Dosage: CARBOPLATIN (AUC 2) / PACLITAXEL (50MG/... (1 DF)
     Dates: start: 20191210, end: 20200122
  3. PACLITAXELUM [Concomitant]
     Active Substance: PACLITAXEL
     Dosage: CARBOPLATIN (AUC 2) / PACLITAXEL (50MG/... (50 MG/M2 )
     Dates: start: 20191210, end: 20200122
  4. ATORVASTATINE [Concomitant]
     Active Substance: ATORVASTATIN
  5. METFORMIN HYDROCHLORIDE. [Concomitant]
     Active Substance: METFORMIN HYDROCHLORIDE
     Dosage: 850 MG 8 HOURS
  6. IMFINZI [Suspect]
     Active Substance: DURVALUMAB
     Dosage: 10.0MG/KG UNKNOWN
     Route: 042
     Dates: start: 20200210, end: 20200224
  7. BELOC ZOK [Concomitant]
     Active Substance: METOPROLOL SUCCINATE
  8. ELIQUIS [Concomitant]
     Active Substance: APIXABAN
     Dosage: ELIQUIS 5MG 1-0-1-0.

REACTIONS (2)
  - Acute respiratory distress syndrome [Not Recovered/Not Resolved]
  - Pneumonitis [Not Recovered/Not Resolved]

NARRATIVE: CASE EVENT DATE: 20200224
